FAERS Safety Report 8820600 (Version 6)
Quarter: 2013Q1

REPORT INFORMATION
  Report Type: Report from Study
  Country: US (occurrence: US)
  Receive Date: 20121002
  Receipt Date: 20130122
  Transmission Date: 20140127
  Serious: No
  Sender: FDA-Public Use
  Company Number: US-VERTEX PHARMACEUTICAL INC.-2012-020424

PATIENT
  Age: 54 Year
  Sex: Male
  Weight: 82 kg

DRUGS (6)
  1. VX-950 (TELAPREVIR) [Suspect]
     Indication: HEPATITIS C
     Dosage: 750 MG, TID
     Route: 048
     Dates: start: 20120809, end: 20121128
  2. PEGASYS [Suspect]
     Indication: HEPATITIS C
     Dosage: 180 ?G, QW
     Route: 058
     Dates: start: 20120809
  3. RIBASPHERE [Suspect]
     Indication: HEPATITIS C
     Dosage: 600 MG, BID
     Route: 048
     Dates: start: 20120809
  4. HYDROCODONE [Concomitant]
     Dosage: 1 DF, PRN
     Route: 048
     Dates: start: 20120809
  5. ALPRAZOLAM [Concomitant]
     Dosage: 0.25 MG, QD
     Route: 048
     Dates: start: 20120809
  6. VICTRELIS [Concomitant]
     Dosage: UNK
     Dates: end: 201211

REACTIONS (7)
  - Depression [Unknown]
  - Limb injury [Unknown]
  - Headache [Unknown]
  - Fatigue [Unknown]
  - Rash papular [Unknown]
  - Thrombocytopenia [Unknown]
  - Pruritus [Unknown]
